FAERS Safety Report 10515697 (Version 1)
Quarter: 2014Q4

REPORT INFORMATION
  Report Type: Spontaneous
  Country: US (occurrence: None)
  Receive Date: 20141001
  Receipt Date: 20141001
  Transmission Date: 20150528
  Serious: Yes (Hospitalization, Other)
  Sender: FDA-Public Use
  Company Number: 1000069057

PATIENT
  Age: 52 Year
  Sex: Female

DRUGS (2)
  1. SAPHRIS [Suspect]
     Active Substance: ASENAPINE MALEATE
     Indication: BIPOLAR II DISORDER
     Dosage: 5MG (ONE DOSE) (5 MG, ONE DOSE), SUBLINQUAL
     Route: 060
     Dates: start: 201406, end: 201406
  2. EFFEXOR (VENLAFAXINE HYDROCHLORIDE) [Concomitant]

REACTIONS (8)
  - Influenza [None]
  - Palpitations [None]
  - Suicidal ideation [None]
  - Feeling drunk [None]
  - Musculoskeletal stiffness [None]
  - Headache [None]
  - Nausea [None]
  - Urinary hesitation [None]

NARRATIVE: CASE EVENT DATE: 201406
